APPROVED DRUG PRODUCT: SODIUM BICARBONATE
Active Ingredient: SODIUM BICARBONATE
Strength: 50MEQ/50ML (1MEQ/ML)
Dosage Form/Route: SOLUTION;INTRAVENOUS
Application: A216042 | Product #001 | TE Code: AP
Applicant: LONG GROVE PHARMACEUTICALS LLC
Approved: Feb 27, 2024 | RLD: No | RS: No | Type: RX